FAERS Safety Report 4962490-5 (Version None)
Quarter: 2006Q1

REPORT INFORMATION
  Report Type: 
  Country: None (occurrence: None)
  Receive Date: 20060208
  Receipt Date: 20050520
  Transmission Date: 20060701
  Serious: Yes (Other)
  Sender: FDA-Public Use
  Company Number: DSA_60491_2005

PATIENT
  Age: 34 Year
  Sex: Female
  Weight: 124.7392 kg

DRUGS (6)
  1. MIGRANAL [Suspect]
     Indication: MIGRAINE
     Dosage: 2 DF ONCE IN
     Route: 045
     Dates: start: 20050515
  2. DEPAKOTE [Concomitant]
  3. SEROQUEL [Concomitant]
  4. NEURONTIN [Concomitant]
  5. LEVOTHYROXINE SODIUM [Concomitant]
  6. IMITREX [Concomitant]

REACTIONS (2)
  - CHEST DISCOMFORT [None]
  - CHEST PAIN [None]
